FAERS Safety Report 5000093-7 (Version None)
Quarter: 2006Q2

REPORT INFORMATION
  Report Type: 
  Country: None (occurrence: None)
  Receive Date: 20060509
  Receipt Date: 20060426
  Transmission Date: 20061013
  Serious: Yes (Hospitalization, Other)
  Sender: FDA-Public Use
  Company Number: JP200604003699

PATIENT
  Age: 40 Year
  Sex: Male

DRUGS (1)
  1. ZYPREXA [Suspect]
     Indication: DEPRESSIVE SYMPTOM
     Dosage: 2.5 MG, 2/D, ORAL
     Route: 048
     Dates: end: 20060419

REACTIONS (2)
  - DIABETES MELLITUS [None]
  - SURGERY [None]
